FAERS Safety Report 4418207-6 (Version None)
Quarter: 2004Q3

REPORT INFORMATION
  Report Type: 
  Country: None (occurrence: None)
  Receive Date: 20040809
  Receipt Date: 20040106
  Transmission Date: 20050211
  Serious: No
  Sender: FDA-Public Use
  Company Number: US-GLAXOSMITHKLINE-A0491688A

PATIENT
  Sex: Female

DRUGS (3)
  1. PAXIL CR [Suspect]
     Dosage: 25MG PER DAY
     Route: 048
     Dates: start: 20031202
  2. MULTI-VITAMIN [Concomitant]
  3. VITAMIN B-12 [Concomitant]

REACTIONS (5)
  - ABDOMINAL PAIN UPPER [None]
  - ADVERSE EVENT [None]
  - FATIGUE [None]
  - HYPERTONIA [None]
  - NIGHT SWEATS [None]
